FAERS Safety Report 7764843-9 (Version None)
Quarter: 2011Q3

REPORT INFORMATION
  Report Type: 
  Country: None (occurrence: None)
  Receive Date: 20110921
  Receipt Date: 20110916
  Transmission Date: 20111222
  Serious: Yes (Other)
  Sender: FDA-Public Use
  Company Number: US-PFIZER INC-2011172470

PATIENT
  Sex: Female
  Weight: 95.2 kg

DRUGS (14)
  1. TOPAMAX [Concomitant]
     Dosage: 50 MG, 2X/DAY
  2. PROTONIX [Concomitant]
     Dosage: 40 MG, 1X/DAY
  3. ADVIL LIQUI-GELS [Concomitant]
     Indication: ARTHRITIS
     Dosage: UNK
  4. PREMARIN [Concomitant]
     Dosage: 1.25 MG, 1X/DAY
  5. MS CONTIN [Concomitant]
     Dosage: 60 MG, 2X/DAY
  6. MUCINEX [Concomitant]
     Dosage: UNK, 1X/DAY
  7. PRISTIQ [Suspect]
     Indication: DEPRESSION
     Dosage: 50 MG, 1X/DAY
     Route: 048
     Dates: start: 20110601
  8. AMBIEN [Concomitant]
     Dosage: 10 MG, 1X/DAY
  9. LYRICA [Concomitant]
     Dosage: 150 MG, 2X/DAY
  10. TOPROL-XL [Concomitant]
     Dosage: 100 MG, 1X/DAY
  11. XANAX [Concomitant]
     Dosage: 0.1 MG, 3X/DAY
  12. VALTREX [Concomitant]
     Dosage: 1 MG, 1X/DAY
  13. TREXIMET [Concomitant]
     Indication: MIGRAINE
     Dosage: UNK
  14. MOBIC [Concomitant]
     Dosage: 30 MG, 1X/DAY

REACTIONS (4)
  - INJECTION SITE HAEMORRHAGE [None]
  - ABDOMINAL PAIN [None]
  - INSOMNIA [None]
  - HEADACHE [None]
